FAERS Safety Report 24227036 (Version 1)
Quarter: 2024Q3

REPORT INFORMATION
  Report Type: Spontaneous
  Country: JP (occurrence: JP)
  Receive Date: 20240820
  Receipt Date: 20240820
  Transmission Date: 20241017
  Serious: Yes (Hospitalization, Other)
  Sender: EMD SERONO INC
  Company Number: JP-Merck Healthcare KGaA-2024043928

PATIENT
  Age: 33 Year
  Sex: Male
  Weight: 93 kg

DRUGS (5)
  1. METGLUCO [Suspect]
     Active Substance: METFORMIN HYDROCHLORIDE
     Indication: Diabetes mellitus
     Route: 048
  2. OZEMPIC [Suspect]
     Active Substance: SEMAGLUTIDE
     Indication: Product used for unknown indication
     Route: 058
  3. LANTUS [Suspect]
     Active Substance: INSULIN GLARGINE
     Indication: Diabetes mellitus
  4. VICTOZA [Suspect]
     Active Substance: LIRAGLUTIDE
     Indication: Product used for unknown indication
  5. PIOGLITAZONE HYDROCHLORIDE [Suspect]
     Active Substance: PIOGLITAZONE HYDROCHLORIDE
     Indication: Product used for unknown indication
     Dosage: 30 MG TO 15 MG (VISIT X)

REACTIONS (8)
  - Diabetes mellitus inadequate control [Unknown]
  - Renal impairment [Unknown]
  - Hepatic steatosis [Unknown]
  - Urine ketone body present [Unknown]
  - Weight increased [Unknown]
  - Nausea [Unknown]
  - Hepatic function abnormal [Unknown]
  - Treatment noncompliance [Unknown]
